FAERS Safety Report 5176481-5 (Version None)
Quarter: 2006Q4

REPORT INFORMATION
  Report Type: 
  Country: None (occurrence: None)
  Receive Date: 20061215
  Receipt Date: 20061206
  Transmission Date: 20070319
  Serious: Yes (Hospitalization, Disabling)
  Sender: FDA-Public Use
  Company Number: GB-SANOFI-SYNTHELABO-A01200610615

PATIENT
  Age: 64 Year
  Sex: Male
  Weight: 79 kg

DRUGS (12)
  1. ACETAMINOPHEN [Concomitant]
  2. LOSEC [Concomitant]
  3. FYBOGEL [Concomitant]
  4. FLUOXETINE [Concomitant]
     Indication: DEPRESSION
     Route: 048
  5. FLECAINIDE ACETATE [Concomitant]
  6. FINASTERIDE [Concomitant]
  7. DOMPERIDONE [Concomitant]
     Indication: PROPHYLAXIS OF NAUSEA AND VOMITING
     Route: 048
  8. DEXAMETHASONE [Concomitant]
     Indication: PROPHYLAXIS OF NAUSEA AND VOMITING
     Route: 048
  9. ASPIRIN [Concomitant]
     Indication: ARRHYTHMIA
  10. ASPIRIN [Concomitant]
     Indication: MYOCARDIAL ISCHAEMIA
  11. RALTITREXED [Suspect]
     Route: 041
     Dates: start: 20060920, end: 20060920
  12. OXALIPLATIN [Suspect]
     Indication: COLON CANCER METASTATIC
     Route: 041
     Dates: start: 20060920, end: 20060920

REACTIONS (2)
  - ACUTE PSYCHOSIS [None]
  - PARANOIA [None]
